FAERS Safety Report 24650971 (Version 1)
Quarter: 2024Q4

REPORT INFORMATION
  Report Type: Spontaneous
  Country: CZ (occurrence: CZ)
  Receive Date: 20241122
  Receipt Date: 20241122
  Transmission Date: 20250114
  Serious: Yes (Hospitalization)
  Sender: CELLTRION
  Company Number: CZ-CELLTRION INC.-2024CZ024838

PATIENT

DRUGS (15)
  1. INFLIXIMAB [Suspect]
     Active Substance: INFLIXIMAB
     Indication: Rheumatoid arthritis
     Dosage: 120 MG, EVERY 2 WEEKS
     Route: 058
     Dates: start: 20240606, end: 20240912
  2. METHOTREXATE [Concomitant]
     Active Substance: METHOTREXATE
     Indication: Rheumatoid arthritis
     Dosage: 15 MG, ONCE PER WEEK
     Route: 048
     Dates: start: 20230426
  3. FOLIC ACID [Concomitant]
     Active Substance: FOLIC ACID
     Indication: Rheumatoid arthritis
     Dosage: 10 MG, ONCE PER WEEK
     Route: 048
     Dates: start: 20111118
  4. CALCIUM CARBONATE [Concomitant]
     Active Substance: CALCIUM CARBONATE
     Indication: Vitamin D decreased
     Dosage: 2500 MG, QD
     Route: 048
     Dates: start: 20221025
  5. CHOLECALCIFEROL [Concomitant]
     Active Substance: CHOLECALCIFEROL
     Indication: Vitamin D decreased
     Dosage: 25 DROP, ONCE PER WEEK
     Route: 048
     Dates: start: 20230426
  6. ZALDIAR [Concomitant]
     Active Substance: ACETAMINOPHEN\TRAMADOL HYDROCHLORIDE
     Indication: Myocardial ischaemia
     Dosage: 37.5 MG, TID
     Route: 048
     Dates: start: 20221214
  7. ELIQUIS [Concomitant]
     Active Substance: APIXABAN
     Indication: Myocardial ischaemia
     Dosage: 5 MG, BID
     Route: 048
     Dates: start: 20240417
  8. ACESIAL [Concomitant]
     Indication: Hypertension
     Dosage: 10 MG, QD
     Route: 048
     Dates: start: 20210826
  9. LERCANIDIPINE HYDROCHLORIDE [Concomitant]
     Active Substance: LERCANIDIPINE HYDROCHLORIDE
     Indication: Hypertension
     Dosage: 20 MG, QD
     Route: 048
     Dates: start: 20210826
  10. BISOPROLOL [Concomitant]
     Active Substance: BISOPROLOL
     Indication: Hypertension
     Dosage: 1.25 MG, QD
     Route: 048
     Dates: start: 20210826
  11. GLICLAZIDE [Concomitant]
     Active Substance: GLICLAZIDE
     Indication: Type 2 diabetes mellitus
     Dosage: 30 MG, BID
     Route: 048
     Dates: start: 20210913
  12. JAZETA [Concomitant]
     Indication: Type 2 diabetes mellitus
     Dosage: 100 MG, QD
     Route: 048
     Dates: start: 20240327
  13. LATANOPROST\TIMOLOL MALEATE [Concomitant]
     Active Substance: LATANOPROST\TIMOLOL MALEATE
     Indication: Glaucoma
     Dosage: 0.05 ML, TID
     Route: 048
     Dates: start: 20210916
  14. DUTROZEN [Concomitant]
     Indication: Benign prostatic hyperplasia
     Dosage: 0.5 MG, QD
     Route: 048
     Dates: start: 20210916
  15. ROSUVASTATIN CALCIUM [Concomitant]
     Active Substance: ROSUVASTATIN CALCIUM
     Indication: Hyperlipidaemia
     Dosage: 40 MG, QD
     Route: 048
     Dates: start: 20210826

REACTIONS (2)
  - Acute kidney injury [Recovered/Resolved]
  - Cardiac failure [Recovered/Resolved]

NARRATIVE: CASE EVENT DATE: 20240917
